FAERS Safety Report 4361204-X (Version None)
Quarter: 2004Q2

REPORT INFORMATION
  Report Type: 
  Country: None (occurrence: None)
  Receive Date: 20040505
  Receipt Date: 20030508
  Transmission Date: 20050107
  Serious: Yes (Hospitalization)
  Sender: FDA-Public Use
  Company Number: 8002488

PATIENT
  Age: 30 Year
  Sex: Male

DRUGS (2)
  1. LORTAB [Suspect]
     Indication: MUSCLE STRAIN
     Dosage: PO
     Route: 048
  2. STEROID INJECTION [Concomitant]

REACTIONS (1)
  - PANCREATITIS [None]
